FAERS Safety Report 4394570-X (Version None)
Quarter: 2004Q3

REPORT INFORMATION
  Report Type: 
  Country: None (occurrence: None)
  Receive Date: 20040707
  Receipt Date: 20040624
  Transmission Date: 20050211
  Serious: Yes (Hospitalization)
  Sender: FDA-Public Use
  Company Number: O4P-163-0256043-00

PATIENT
  Age: 65 Year
  Sex: Female

DRUGS (10)
  1. HUMIRA [Suspect]
     Indication: RHEUMATOID ARTHRITIS
     Dosage: 40 MG, 1 IN 2 WK, SUBCUTANEOUS (SEE IMAGE)
     Route: 058
     Dates: start: 20030901, end: 20040101
  2. SULFASALAZINE [Concomitant]
  3. ALBUTEROL SULFATE [Concomitant]
  4. IPRATROPIUM BROMBIDE [Concomitant]
  5. ROFECOXIB [Concomitant]
  6. LEVOTHYROXINE SODIUM [Concomitant]
  7. MULTI-VITAMINS [Concomitant]
  8. ASPIRIN [Concomitant]
  9. CALCIUM [Concomitant]
  10. RANITIDINE [Concomitant]

REACTIONS (6)
  - HYPOKALAEMIA [None]
  - INTERVERTEBRAL DISC DEGENERATION [None]
  - MUSCULAR WEAKNESS [None]
  - OSTEOARTHRITIS [None]
  - PAIN [None]
  - SPINAL OSTEOARTHRITIS [None]
